FAERS Safety Report 5145056-6 (Version None)
Quarter: 2006Q4

REPORT INFORMATION
  Report Type: 
  Country: None (occurrence: None)
  Receive Date: 20060914
  Receipt Date: 20060628
  Transmission Date: 20070319
  Serious: Yes (Other)
  Sender: FDA-Public Use
  Company Number: PHEH2006US08461

PATIENT
  Age: 69 Year
  Sex: Male

DRUGS (8)
  1. DIOVAN [Suspect]
     Indication: CARDIAC DISORDER
     Dosage: 160 MG, QD
     Dates: start: 20060103, end: 20060113
  2. ALBUTEROL [Concomitant]
  3. ZYRTEC [Concomitant]
  4. SINGULAIR [Concomitant]
  5. CRESTOR (ROSUVASTATIN CALICIUM) [Concomitant]
  6. ASPIRIN [Concomitant]
  7. ACIPHEX [Concomitant]
  8. ZETIA [Concomitant]

REACTIONS (1)
  - ANGIONEUROTIC OEDEMA [None]
